FAERS Safety Report 4643838-8 (Version None)
Quarter: 2005Q2

REPORT INFORMATION
  Report Type: 
  Country: None (occurrence: None)
  Receive Date: 20050425
  Receipt Date: 20050119
  Transmission Date: 20051028
  Serious: Yes (Other)
  Sender: FDA-Public Use
  Company Number: US-MERCK-0501USA03261

PATIENT
  Age: 71 Year
  Sex: Male
  Weight: 80 kg

DRUGS (15)
  1. VIOXX [Suspect]
     Indication: ARTHRALGIA
     Route: 048
     Dates: start: 20001001, end: 20040901
  2. VIOXX [Suspect]
     Indication: ARTHRITIS
     Route: 048
     Dates: start: 20001001, end: 20040901
  3. COZAAR [Concomitant]
     Indication: MYOCARDIAL INFARCTION
     Route: 048
     Dates: start: 20001001, end: 20050101
  4. COZAAR [Concomitant]
     Indication: DIABETES MELLITUS
     Route: 048
     Dates: start: 20001001, end: 20050101
  5. THEOPHYLLINE [Concomitant]
     Route: 065
  6. XOPENEX [Concomitant]
     Route: 065
  7. IPRATROPIUM BROMIDE [Concomitant]
     Route: 065
  8. GLYBURIDE [Concomitant]
     Route: 065
  9. LEVOTHYROXINE SODIUM [Concomitant]
     Route: 065
  10. POTASSIUM CHLORIDE [Concomitant]
     Route: 065
  11. LANOXIN [Concomitant]
     Route: 065
  12. LIPITOR [Concomitant]
     Route: 065
  13. PLAVIX [Concomitant]
     Route: 065
  14. PACERONE [Concomitant]
     Route: 065
  15. NITROQUICK [Concomitant]
     Route: 065

REACTIONS (6)
  - BLOOD CHOLESTEROL INCREASED [None]
  - CONFUSIONAL STATE [None]
  - MYOCARDIAL INFARCTION [None]
  - OEDEMA PERIPHERAL [None]
  - PAPILLOEDEMA [None]
  - TRANSIENT ISCHAEMIC ATTACK [None]
